FAERS Safety Report 6032587-X (Version None)
Quarter: 2009Q1

REPORT INFORMATION
  Report Type: 
  Country: None (occurrence: None)
  Receive Date: 20090109
  Receipt Date: 20081230
  Transmission Date: 20090719
  Serious: Yes (Hospitalization)
  Sender: FDA-Public Use
  Company Number: US-BAXTER-2009BH000040

PATIENT
  Age: 72 Year
  Sex: Male

DRUGS (3)
  1. DIANEAL [Suspect]
     Indication: PERITONEAL DIALYSIS
     Route: 033
     Dates: start: 20081223
  2. DIANEAL [Suspect]
     Route: 033
     Dates: start: 20081215, end: 20081223
  3. DIANEAL [Suspect]
     Route: 033
     Dates: start: 20061023, end: 20081212

REACTIONS (2)
  - INGUINAL HERNIA [None]
  - UMBILICAL HERNIA [None]
